FAERS Safety Report 7722935-4 (Version None)
Quarter: 2011Q3

REPORT INFORMATION
  Report Type: 
  Country: None (occurrence: None)
  Receive Date: 20110826
  Receipt Date: 20110815
  Transmission Date: 20111222
  Serious: Yes (Other)
  Sender: FDA-Public Use
  Company Number: 018862

PATIENT
  Age: 44 Year
  Sex: Female

DRUGS (12)
  1. XALATAN [Concomitant]
  2. GLYCEROL 2.6% [Concomitant]
  3. BETNESOL (BETAMETHASONE SODIUM PHOSPHATE) [Concomitant]
  4. MACUGEN [Suspect]
     Indication: DIABETIC RETINOPATHY
     Dosage: 0.3 MG, INTRAOCULAR
     Route: 031
     Dates: start: 20090114, end: 20090114
  5. DIAMOX [Concomitant]
  6. ALPHAGAN [Concomitant]
  7. REFRESH PLUS (CARMELLOSE SODIUM) [Concomitant]
  8. PROVIDONE-IODINE [Concomitant]
  9. ATROPINE [Concomitant]
  10. SLOW-K [Concomitant]
  11. TIMOLOL MALEATE [Concomitant]
  12. HYPERTONIC SALINE (HYPERTONIC SALINE) [Concomitant]

REACTIONS (2)
  - POST PROCEDURAL COMPLICATION [None]
  - HYPHAEMA [None]
